FAERS Safety Report 25899327 (Version 1)
Quarter: 2025Q4

REPORT INFORMATION
  Report Type: Spontaneous
  Country: EU (occurrence: EU)
  Receive Date: 20251009
  Receipt Date: 20251009
  Transmission Date: 20260118
  Serious: No
  Sender: ALKEM
  Company Number: EU-ALKEM LABORATORIES LIMITED-DE-ALKEM-2025-08850

PATIENT
  Age: 41 Year
  Sex: Female

DRUGS (9)
  1. OXCARBAZEPINE [Suspect]
     Active Substance: OXCARBAZEPINE
     Indication: Partial seizures
     Dosage: 2100 MILLIGRAM, QD
     Route: 065
  2. OXCARBAZEPINE [Suspect]
     Active Substance: OXCARBAZEPINE
     Dosage: 600 MILLIGRAM, QD
     Route: 065
  3. OXCARBAZEPINE [Suspect]
     Active Substance: OXCARBAZEPINE
     Dosage: 1200 MILLIGRAM, QD
     Route: 065
  4. OXCARBAZEPINE [Suspect]
     Active Substance: OXCARBAZEPINE
     Dosage: 900 MILLIGRAM, QD (LOWERING DOSE)
     Route: 065
  5. PERAMPANEL [Suspect]
     Active Substance: PERAMPANEL
     Indication: Partial seizures
     Dosage: 12 MILLIGRAM, QD
     Route: 065
  6. CENOBAMATE [Suspect]
     Active Substance: CENOBAMATE
     Indication: Partial seizures
     Dosage: 12.5 MG/D
     Route: 065
  7. CENOBAMATE [Suspect]
     Active Substance: CENOBAMATE
     Dosage: 400 MG/D
     Route: 065
     Dates: start: 202306
  8. CENOBAMATE [Suspect]
     Active Substance: CENOBAMATE
     Dosage: 200 MG/D
     Route: 065
     Dates: start: 202307
  9. CENOBAMATE [Suspect]
     Active Substance: CENOBAMATE
     Dosage: 400 MG/D
     Route: 065
     Dates: start: 202503

REACTIONS (2)
  - Dizziness [Recovered/Resolved]
  - Drug ineffective [Unknown]
